FAERS Safety Report 5425390-2 (Version None)
Quarter: 2007Q3

REPORT INFORMATION
  Report Type: 
  Country: None (occurrence: None)
  Receive Date: 20070824
  Receipt Date: 20070824
  Transmission Date: 20080115
  Serious: Yes (Hospitalization)
  Sender: FDA-Public Use
  Company Number: DE-ROXANE LABORATORIES, INC-2007-DE-04929GD

PATIENT
  Age: 20 Year
  Sex: Female

DRUGS (4)
  1. IBUPROFEN [Suspect]
  2. CITALOPRAM [Suspect]
  3. ZOLPIDEM TARTRATE [Suspect]
  4. ANTIDEPRESSANT [Suspect]

REACTIONS (3)
  - DEPRESSION [None]
  - DRUG TOXICITY [None]
  - GASTROINTESTINAL SOUNDS ABNORMAL [None]
